FAERS Safety Report 9928530 (Version 2)
Quarter: 2014Q1

REPORT INFORMATION
  Report Type: Spontaneous
  Country: US (occurrence: US)
  Receive Date: 20140227
  Receipt Date: 20140316
  Transmission Date: 20141002
  Serious: Yes (Hospitalization, Other)
  Sender: FDA-Public Use
  Company Number: US-BAYER-2014-028342

PATIENT
  Age: 25 Year
  Sex: Female

DRUGS (5)
  1. MIRENA [Suspect]
     Indication: CONTRACEPTION
     Dosage: 20 MCG/24HR, CONT
     Route: 015
     Dates: start: 20090825, end: 20101021
  2. ALBUTEROL [Concomitant]
     Indication: ASTHMA
  3. PROZAC [Concomitant]
  4. CIPRO [Concomitant]
     Indication: PAIN
  5. LORTAB [Concomitant]
     Indication: PAIN
     Dosage: 20 UNK, UNK

REACTIONS (8)
  - Uterine perforation [None]
  - Abdominal pain [None]
  - Genital haemorrhage [None]
  - Pelvic inflammatory disease [Unknown]
  - Device issue [None]
  - Injury [None]
  - Emotional distress [None]
  - Pain [None]
